FAERS Safety Report 5816866-4 (Version None)
Quarter: 2008Q3

REPORT INFORMATION
  Report Type: 
  Country: None (occurrence: None)
  Receive Date: 20080721
  Receipt Date: 20080718
  Transmission Date: 20090109
  Serious: Yes (Hospitalization)
  Sender: FDA-Public Use
  Company Number: US-MERCK-0805USA00770

PATIENT
  Age: 78 Year
  Sex: Male

DRUGS (9)
  1. JANUVIA [Suspect]
     Indication: DIABETES MELLITUS
     Route: 048
     Dates: start: 20080502
  2. AMARYL [Concomitant]
     Route: 048
  3. TOPROL-XL [Concomitant]
     Route: 048
  4. VYTORIN [Concomitant]
     Route: 048
  5. METFORMIN [Concomitant]
     Route: 065
  6. PROTONIX [Concomitant]
     Route: 065
  7. MONOPRIL [Concomitant]
     Route: 065
  8. WARFARIN [Concomitant]
     Route: 065
  9. FUROSEMIDE [Concomitant]
     Route: 065

REACTIONS (2)
  - GASTROINTESTINAL HAEMORRHAGE [None]
  - PALLOR [None]
